FAERS Safety Report 7349436-X (Version None)
Quarter: 2011Q1

REPORT INFORMATION
  Report Type: 
  Country: None (occurrence: None)
  Receive Date: 20110314
  Receipt Date: 20101012
  Transmission Date: 20110831
  Serious: No
  Sender: FDA-Public Use
  Company Number: US-ABBOTT-10P-163-0678656-00

PATIENT
  Sex: Male
  Weight: 61.29 kg

DRUGS (9)
  1. DEPAKOTE [Suspect]
     Indication: BIPOLAR DISORDER
     Dates: start: 19980101, end: 20100701
  2. LITHIUM CARBONATE [Concomitant]
     Indication: BIPOLAR DISORDER
  3. SULFAMETHOXAZOLE AND TRIMETHOPRIM [Concomitant]
     Indication: PRODUCT USED FOR UNKNOWN INDICATION
  4. MULTIVITAMIN [Concomitant]
     Indication: VITAMIN SUPPLEMENTATION
  5. AZITHROMYCIN [Concomitant]
     Indication: HIV INFECTION
  6. PROVISTA [Concomitant]
     Indication: HIV INFECTION
     Dates: start: 20100701
  7. TRUVADA [Concomitant]
     Indication: HIV INFECTION
  8. KALETRA [Suspect]
     Indication: HIV INFECTION
     Dates: start: 20090101, end: 20100701
  9. NORVIR [Concomitant]
     Indication: HIV INFECTION

REACTIONS (5)
  - VOMITING [None]
  - DYSGEUSIA [None]
  - HEADACHE [None]
  - CONSTIPATION [None]
  - WEIGHT DECREASED [None]
